FAERS Safety Report 24276667 (Version 1)
Quarter: 2024Q3

REPORT INFORMATION
  Report Type: Spontaneous
  Country: KR (occurrence: KR)
  Receive Date: 20240903
  Receipt Date: 20240903
  Transmission Date: 20241017
  Serious: Yes (Other)
  Sender: ROCHE
  Company Number: KR-002147023-NVSC2024KR174796

PATIENT

DRUGS (1)
  1. XOLAIR [Suspect]
     Active Substance: OMALIZUMAB
     Indication: Product used for unknown indication
     Dosage: 24 MG, PRN (FORMULATION: VIAL)
     Route: 065
     Dates: start: 20240101, end: 20240204

REACTIONS (1)
  - Post micturition dribble [Unknown]
